FAERS Safety Report 7932650-X (Version None)
Quarter: 2011Q4

REPORT INFORMATION
  Report Type: 
  Country: None (occurrence: None)
  Receive Date: 20111122
  Receipt Date: 20111114
  Transmission Date: 20120403
  Serious: Yes (Other)
  Sender: FDA-Public Use
  Company Number: JP-BRISTOL-MYERS SQUIBB COMPANY-16238677

PATIENT
  Age: 89 Year
  Sex: Female

DRUGS (6)
  1. METHYCOBAL [Concomitant]
     Indication: DIABETES MELLITUS
     Route: 048
     Dates: start: 19990524
  2. LASIX [Concomitant]
     Indication: HYPERTENSION
     Route: 048
     Dates: start: 19970101
  3. MAGNESIUM SULFATE [Concomitant]
     Route: 048
  4. KETOPROFEN [Concomitant]
     Route: 062
  5. ASPIRIN [Concomitant]
     Route: 048
  6. IRBESARTAN [Suspect]
     Indication: HYPERTENSION
     Route: 048
     Dates: start: 20111006, end: 20111024

REACTIONS (1)
  - INTERSTITIAL LUNG DISEASE [None]
